FAERS Safety Report 9436618 (Version 2)
Quarter: 2013Q3

REPORT INFORMATION
  Report Type: Spontaneous
  Country: US (occurrence: US)
  Receive Date: 20130802
  Receipt Date: 20130828
  Transmission Date: 20140515
  Serious: Yes (Death)
  Sender: FDA-Public Use
  Company Number: US-JNJFOC-20130718042

PATIENT
  Age: 83 Year
  Sex: Female
  Weight: 69.85 kg

DRUGS (4)
  1. CHILDRENS MOTRIN PRODUCT UNSPECIFIED [Suspect]
     Route: 048
  2. CHILDRENS MOTRIN PRODUCT UNSPECIFIED [Suspect]
     Indication: PYREXIA
     Dosage: 2 FULL DROPPERS, EVERY FOUR HOURS
     Route: 048
     Dates: end: 20130615
  3. CHILDREN^S BENADRYL [Concomitant]
     Indication: MULTIPLE ALLERGIES
     Dosage: 1-2 DROPPERS AS NEEDED
     Route: 048
     Dates: end: 20130615
  4. PAIN MEDICATION [Concomitant]
     Indication: PRODUCT USED FOR UNKNOWN INDICATION
     Route: 065

REACTIONS (2)
  - Death [Fatal]
  - Off label use [Unknown]
